FAERS Safety Report 7271766-0 (Version None)
Quarter: 2011Q1

REPORT INFORMATION
  Report Type: 
  Country: None (occurrence: None)
  Receive Date: 20110126
  Receipt Date: 20110114
  Transmission Date: 20110831
  Serious: Yes (Hospitalization)
  Sender: FDA-Public Use
  Company Number: DSA_44818_2011

PATIENT
  Age: 61 Year
  Sex: Male

DRUGS (6)
  1. GENTAMICIN SULFATE [Suspect]
     Indication: INTERVERTEBRAL DISCITIS
     Dosage: (DF INTRAVENOUS (NOT OTHERWISE SPECIFIED))
     Route: 042
     Dates: start: 20070904, end: 20070911
  2. DILTIAZEM HYDROCHLORIDE [Suspect]
     Indication: PRODUCT USED FOR UNKNOWN INDICATION
     Dosage: (200 MG ORAL)
     Route: 048
  3. AMOXICILLIN [Concomitant]
  4. FENOFIBRATE [Suspect]
     Indication: PRODUCT USED FOR UNKNOWN INDICATION
     Dosage: (160 MG ORAL)
     Route: 048
  5. ALFUZOSIN HYDROCHLORIDE [Suspect]
     Indication: PRODUCT USED FOR UNKNOWN INDICATION
     Dosage: (10 MG ORAL)
     Route: 048
  6. FLUINDIONE (FLUINDIONE) 20 MG [Suspect]
     Indication: PRODUCT USED FOR UNKNOWN INDICATION
     Dosage: (20 MG ORAL)
     Route: 048

REACTIONS (1)
  - RENAL FAILURE ACUTE [None]
